FAERS Safety Report 10878861 (Version 4)
Quarter: 2016Q2

REPORT INFORMATION
  Report Type: Report from Study
  Country: US (occurrence: US)
  Receive Date: 20150302
  Receipt Date: 20160426
  Transmission Date: 20160815
  Serious: Yes (Hospitalization, Other)
  Sender: FDA-Public Use
  Company Number: US-ABBVIE-15K-163-1352792-00

PATIENT
  Age: 61 Year
  Sex: Female

DRUGS (2)
  1. HUMIRA [Suspect]
     Active Substance: ADALIMUMAB
     Indication: RHEUMATOID ARTHRITIS
     Route: 058
     Dates: start: 20140718, end: 201502
  2. HUMIRA [Suspect]
     Active Substance: ADALIMUMAB
     Route: 058
     Dates: start: 20150303, end: 20160331

REACTIONS (5)
  - Intussusception [Recovered/Resolved]
  - Multiple sclerosis [Unknown]
  - Myelitis transverse [Recovered/Resolved]
  - Central nervous system lesion [Unknown]
  - Sensory loss [Recovering/Resolving]

NARRATIVE: CASE EVENT DATE: 2015
